FAERS Safety Report 6889613 (Version 3)
Quarter: 2013Q3

REPORT INFORMATION
  Report Type: Report from Study
  Country: VE (occurrence: VE)
  Receive Date: 20090122
  Receipt Date: 20130708
  Transmission Date: 20140515
  Serious: Yes (Other)
  Sender: FDA-Public Use
  Company Number: VE-ABBOTT-09P-178-0497915-00

PATIENT
  Age: 21 Year
  Sex: Female
  Weight: 55 kg

DRUGS (5)
  1. SEVORANE LIQUID FOR INHALATION [Suspect]
     Indication: MAINTENANCE OF ANAESTHESIA
     Dosage: 2 %
     Route: 055
     Dates: start: 20090113, end: 20090113
  2. FENTANYL [Concomitant]
     Indication: ANALGESIC THERAPY
     Route: 042
     Dates: start: 20090113, end: 20090113
  3. THIOPENTAL SODIUM [Concomitant]
     Indication: ANAESTHESIA
     Route: 042
     Dates: start: 20090113, end: 20090113
  4. ESMERON [Concomitant]
     Indication: MUSCLE RELAXANT THERAPY
     Route: 042
     Dates: start: 20090113, end: 20090113
  5. BLOOD TRANSFUSION, AUXILIARY PRODUCTS [Concomitant]
     Indication: PREMATURE SEPARATION OF PLACENTA

REACTIONS (1)
  - Extrasystoles [Recovered/Resolved]
